FAERS Safety Report 5214328-9 (Version None)
Quarter: 2007Q1

REPORT INFORMATION
  Report Type: 
  Country: None (occurrence: None)
  Receive Date: 20070122
  Receipt Date: 20070111
  Transmission Date: 20070707
  Serious: Yes (Hospitalization)
  Sender: FDA-Public Use
  Company Number: ES-AMGEN-UK168031

PATIENT
  Sex: Female
  Weight: 57 kg

DRUGS (4)
  1. ARANESP [Suspect]
     Indication: MYELODYSPLASTIC SYNDROME
     Route: 058
     Dates: start: 20060119, end: 20060119
  2. NEUPOGEN [Concomitant]
     Indication: MYELODYSPLASTIC SYNDROME
     Route: 058
     Dates: start: 20060123
  3. METHYLPREDNISOLONE 16MG TAB [Concomitant]
     Route: 048
     Dates: start: 20050101
  4. TARDYFERON [Concomitant]
     Route: 048
     Dates: start: 20060119

REACTIONS (4)
  - ABDOMINAL PAIN UPPER [None]
  - NAUSEA [None]
  - SPLENIC INFARCTION [None]
  - SPLENOMEGALY [None]
